FAERS Safety Report 8773485 (Version 1)
Quarter: 2012Q4

REPORT INFORMATION
  Report Type: 
  Country: US (occurrence: US)
  Receive Date: 20120907
  Receipt Date: 20120907
  Transmission Date: 20130627
  Serious: Yes (Hospitalization)
  Sender: FDA-Public Use
  Company Number: US-GLAXOSMITHKLINE-A0991612A

PATIENT
  Age: 72 Year
  Sex: Male

DRUGS (6)
  1. AVANDIA [Suspect]
     Indication: DIABETES MELLITUS
     Dosage: 10MG Unknown
     Route: 048
     Dates: start: 2004, end: 200612
  2. LISINOPRIL [Concomitant]
  3. FUROSEMIDE [Concomitant]
  4. SIMVASTATIN [Concomitant]
  5. METOPROLOL [Concomitant]
  6. WARFARIN [Concomitant]

REACTIONS (6)
  - Myocardial infarction [Recovered/Resolved]
  - Pericardial effusion [Unknown]
  - Dyspnoea [Unknown]
  - Heart valve incompetence [Unknown]
  - Pulmonary congestion [Unknown]
  - Heart valve replacement [Unknown]
